FAERS Safety Report 8511304-5 (Version None)
Quarter: 2012Q3

REPORT INFORMATION
  Report Type: 
  Country: None (occurrence: None)
  Receive Date: 20120716
  Receipt Date: 20120704
  Transmission Date: 20120928
  Serious: Yes (Other)
  Sender: FDA-Public Use
  Company Number: BR-BRISTOL-MYERS SQUIBB COMPANY-16767352

PATIENT
  Age: 78 Year
  Sex: Male

DRUGS (4)
  1. ATACAND [Concomitant]
  2. SOMALGIN CARDIO [Concomitant]
  3. METFORMIN HCL [Suspect]
     Indication: TYPE 2 DIABETES MELLITUS
     Route: 048
  4. ENALAPRIL MALEATE [Concomitant]

REACTIONS (2)
  - NEPHRECTOMY [None]
  - BLOOD UREA INCREASED [None]
